FAERS Safety Report 5564344-2 (Version None)
Quarter: 2007Q4

REPORT INFORMATION
  Report Type: 
  Country: None (occurrence: None)
  Receive Date: 20071218
  Receipt Date: 20071210
  Transmission Date: 20080405
  Serious: Yes (Hospitalization, Other)
  Sender: FDA-Public Use
  Company Number: PHRM2007FR02806

PATIENT
  Age: 80 Year
  Sex: Male

DRUGS (7)
  1. IKOREL [Suspect]
     Dosage: 40 MG, QD
     Route: 048
     Dates: end: 20070831
  2. SERETIDE DISKUS [Concomitant]
  3. BRONCHOKOD [Concomitant]
  4. LASIX [Suspect]
     Dosage: 20 MG, QD
     Route: 048
     Dates: end: 20070831
  5. ISOPTIN [Suspect]
     Dosage: 120 MG, QD
     Route: 048
     Dates: end: 20070831
  6. CORDARONE [Suspect]
     Dosage: 200 MG, QD
     Route: 048
     Dates: end: 20070901
  7. NITRODERM [Suspect]
     Dosage: 5 MG,/24 HOURS
     Route: 062
     Dates: end: 20070831

REACTIONS (12)
  - ANGINA UNSTABLE [None]
  - BLOOD CREATININE INCREASED [None]
  - DEHYDRATION [None]
  - FLUID REPLACEMENT [None]
  - HYPERTHYROIDISM [None]
  - HYPONATRAEMIA [None]
  - HYPOTENSION [None]
  - LOSS OF CONSCIOUSNESS [None]
  - MALAISE [None]
  - RENAL FAILURE [None]
  - THYROXINE FREE INCREASED [None]
  - TRI-IODOTHYRONINE FREE INCREASED [None]
